FAERS Safety Report 17587201 (Version 1)
Quarter: 2020Q1

REPORT INFORMATION
  Report Type: Spontaneous
  Country: US (occurrence: US)
  Receive Date: 20200325
  Receipt Date: 20200325
  Transmission Date: 20200409
  Serious: No
  Sender: FDA-Public Use
  Company Number: None

PATIENT
  Age: 63 Year
  Sex: Male

DRUGS (1)
  1. CAPECITABINE TAB 500MG [Suspect]
     Active Substance: CAPECITABINE
     Route: 048
     Dates: start: 202003

REACTIONS (10)
  - Sneezing [None]
  - Multiple allergies [None]
  - Dyspnoea [None]
  - Peripheral swelling [None]
  - Sensitive skin [None]
  - Nausea [None]
  - Feeling jittery [None]
  - Tremor [None]
  - Cough [None]
  - Dry skin [None]

NARRATIVE: CASE EVENT DATE: 20200325
